FAERS Safety Report 17280633 (Version 2)
Quarter: 2022Q1

REPORT INFORMATION
  Report Type: Spontaneous
  Country: US (occurrence: US)
  Receive Date: 20200117
  Receipt Date: 20220223
  Transmission Date: 20220423
  Serious: No
  Sender: FDA-Public Use
  Company Number: US-UCBSA-2019014481

PATIENT
  Sex: Female
  Weight: 39 kg

DRUGS (7)
  1. KEPPRA XR [Suspect]
     Active Substance: LEVETIRACETAM
     Indication: Seizure
     Dosage: 500 MG, ONCE DAILY (QD)
     Route: 048
     Dates: start: 2008
  2. KEPPRA XR [Suspect]
     Active Substance: LEVETIRACETAM
     Dosage: 750 MILLIGRAM, ONCE DAILY (QD)
     Route: 048
     Dates: start: 201903
  3. SINGULAIR [Concomitant]
     Active Substance: MONTELUKAST SODIUM
     Indication: Product used for unknown indication
  4. NASONEX [Concomitant]
     Active Substance: MOMETASONE FUROATE
     Indication: Product used for unknown indication
  5. VOLTAREN [Concomitant]
     Active Substance: DICLOFENAC SODIUM
     Indication: Product used for unknown indication
     Dosage: UNK, AS NEEDED (PRN)
  6. SYMBICORT [Concomitant]
     Active Substance: BUDESONIDE\FORMOTEROL FUMARATE DIHYDRATE
     Indication: Product used for unknown indication
     Dosage: UNK, AS NEEDED (PRN)
  7. ALBUTEROL [Concomitant]
     Active Substance: ALBUTEROL
     Indication: Product used for unknown indication
     Dosage: UNK, AS NEEDED (PRN)

REACTIONS (3)
  - Constipation [Not Recovered/Not Resolved]
  - Unevaluable event [Unknown]
  - Drug ineffective [Unknown]

NARRATIVE: CASE EVENT DATE: 20190301
